FAERS Safety Report 9216765 (Version 1)
Quarter: 2013Q2

REPORT INFORMATION
  Report Type: Spontaneous
  Country: US (occurrence: US)
  Receive Date: 20130408
  Receipt Date: 20130408
  Transmission Date: 20140414
  Serious: No
  Sender: FDA-Public Use
  Company Number: US-PFIZER INC-2013109657

PATIENT
  Sex: Male

DRUGS (2)
  1. SERTRALINE HCL [Suspect]
     Dosage: UNK
     Dates: start: 2012, end: 2012
  2. EFFEXOR XR [Suspect]
     Dosage: UNK
     Dates: start: 201303, end: 2013

REACTIONS (1)
  - Mouth ulceration [Recovered/Resolved]
